FAERS Safety Report 4322254-2 (Version None)
Quarter: 2004Q1

REPORT INFORMATION
  Report Type: 
  Country: None (occurrence: None)
  Receive Date: 20040323
  Receipt Date: 20040317
  Transmission Date: 20041129
  Serious: Yes (Hospitalization)
  Sender: FDA-Public Use
  Company Number: WAES 0403DEU00124

PATIENT
  Age: 6 Year
  Sex: Male

DRUGS (2)
  1. VIOXX [Suspect]
     Indication: JUVENILE ARTHRITIS
     Route: 048
     Dates: start: 20040201, end: 20040317
  2. SULFASALAZINE [Concomitant]

REACTIONS (2)
  - PRESCRIBED OVERDOSE [None]
  - PROTEINURIA [None]
